FAERS Safety Report 7111314-9 (Version None)
Quarter: 2010Q4

REPORT INFORMATION
  Report Type: 
  Country: None (occurrence: None)
  Receive Date: 20101118
  Receipt Date: 20101109
  Transmission Date: 20110411
  Serious: Yes (Hospitalization)
  Sender: FDA-Public Use
  Company Number: US-PURDUE-USA-2010-0053176

PATIENT
  Sex: Male

DRUGS (4)
  1. OXYCONTIN [Suspect]
     Indication: PAIN
     Dosage: 80 MG, TID
     Route: 048
     Dates: start: 20100801
  2. OXYCODONE HCL [Concomitant]
     Indication: BREAKTHROUGH PAIN
     Dosage: 15 MG, UNK
  3. MOM [Concomitant]
     Indication: CONSTIPATION
     Dosage: UNK
  4. CITRUCEL [Concomitant]
     Indication: CONSTIPATION
     Dosage: UNK

REACTIONS (3)
  - CONSTIPATION [None]
  - DRUG EFFECT DECREASED [None]
  - PERONEAL MUSCULAR ATROPHY [None]
